FAERS Safety Report 13815797 (Version 1)
Quarter: 2017Q3

REPORT INFORMATION
  Report Type: Spontaneous
  Country: US (occurrence: US)
  Receive Date: 20170731
  Receipt Date: 20170731
  Transmission Date: 20171127
  Serious: No
  Sender: FDA-Public Use
  Company Number: US-PFIZER INC-2017326891

PATIENT
  Age: 74 Year
  Sex: Female

DRUGS (4)
  1. CELEBREX [Suspect]
     Active Substance: CELECOXIB
     Dosage: UNK
  2. IBUPROFEN. [Suspect]
     Active Substance: IBUPROFEN
  3. TRAMADOL. [Suspect]
     Active Substance: TRAMADOL
  4. NAPROXEN. [Suspect]
     Active Substance: NAPROXEN

REACTIONS (1)
  - Drug hypersensitivity [Unknown]
